FAERS Safety Report 8410959-3 (Version None)
Quarter: 2012Q2

REPORT INFORMATION
  Report Type: 
  Country: None (occurrence: None)
  Receive Date: 20120605
  Receipt Date: 20120531
  Transmission Date: 20120825
  Serious: Yes (Death)
  Sender: FDA-Public Use
  Company Number: FR-SANOFI-AVENTIS-2012SA038476

PATIENT
  Age: 91 Year
  Sex: Male

DRUGS (11)
  1. LEVOTHYROXINE SODIUM [Concomitant]
     Dosage: STRENGTH: 50 MCG
     Route: 048
  2. AUGMENTIN [Suspect]
     Route: 042
     Dates: start: 20120306, end: 20120314
  3. ESCITALOPRAM [Concomitant]
  4. NEBIVOLOL HCL [Concomitant]
     Dosage: STRENGTH:5 MG
     Route: 048
     Dates: end: 20120312
  5. ALDALIX [Concomitant]
     Dosage: STRENGTH:50 MG/20 MG
     Route: 048
     Dates: end: 20120401
  6. ASPIRIN [Concomitant]
     Dosage: STRENGTH:75 MG
     Route: 048
  7. LASIX [Concomitant]
     Dosage: STRENGTH:40 MG
     Route: 048
  8. LOVENOX [Suspect]
     Route: 058
     Dates: start: 20120306, end: 20120324
  9. ALFUZOSIN HCL [Concomitant]
     Dosage: STRENGTH:10 MG
     Route: 048
  10. RABEPRAZOLE SODIUM [Suspect]
     Dosage: STRENGTH:20 MG
     Route: 048
     Dates: start: 20120301
  11. COLCHICINE [Suspect]
     Dosage: STRENGTH:1 MG
     Route: 048
     Dates: start: 20120301, end: 20120323

REACTIONS (3)
  - CHOLESTASIS [None]
  - HYPERBILIRUBINAEMIA [None]
  - JAUNDICE [None]
